FAERS Safety Report 4974850-7 (Version None)
Quarter: 2006Q1

REPORT INFORMATION
  Report Type: 
  Country: None (occurrence: None)
  Receive Date: 20060215
  Receipt Date: 20050325
  Transmission Date: 20060701
  Serious: Yes (Hospitalization)
  Sender: FDA-Public Use
  Company Number: 2005050085

PATIENT
  Sex: Female

DRUGS (3)
  1. DAYPRO [Suspect]
     Indication: ILL-DEFINED DISORDER
  2. TRAZODONE HCL [Concomitant]
  3. ATORVASTATIN CALCIUM [Concomitant]

REACTIONS (3)
  - AGRANULOCYTOSIS [None]
  - PYREXIA [None]
  - WHITE BLOOD CELL COUNT DECREASED [None]
